FAERS Safety Report 21232458 (Version 2)
Quarter: 2022Q4

REPORT INFORMATION
  Report Type: Report from Study
  Country: US (occurrence: US)
  Receive Date: 20220819
  Receipt Date: 20221003
  Transmission Date: 20230113
  Serious: Yes (Hospitalization)
  Sender: FDA-Public Use
  Company Number: US-ABBVIE-22K-163-4506790-00

PATIENT
  Sex: Female

DRUGS (2)
  1. SKYRIZI [Suspect]
     Active Substance: RISANKIZUMAB-RZAA
     Indication: Psoriasis
     Route: 058
     Dates: end: 202202
  2. MODERNA COVID-19 VACCINE [Concomitant]
     Active Substance: ELASOMERAN
     Indication: COVID-19 immunisation
     Dosage: TIME INTERVAL: 1 TOTAL
     Route: 030

REACTIONS (10)
  - Abdominal pain upper [Unknown]
  - Postoperative wound complication [Unknown]
  - Atrial fibrillation [Unknown]
  - COVID-19 [Unknown]
  - Pruritus [Unknown]
  - Alopecia [Unknown]
  - Skin disorder [Unknown]
  - Hospitalisation [Recovering/Resolving]
  - Skin irritation [Unknown]
  - Device issue [Unknown]

NARRATIVE: CASE EVENT DATE: 20220101
